FAERS Safety Report 8833886 (Version 1)
Quarter: 2012Q4

REPORT INFORMATION
  Report Type: 
  Country: ES (occurrence: ES)
  Receive Date: 20121011
  Receipt Date: 20121011
  Transmission Date: 20130627
  Serious: Yes (Hospitalization)
  Sender: FDA-Public Use
  Company Number: ES-PAR PHARMACEUTICAL, INC-2012SCPR004653

PATIENT

DRUGS (6)
  1. RISPERIDONE [Suspect]
     Indication: AGGRESSION
     Dosage: 1 mg, Every 12 hours
     Route: 065
  2. QUETIAPINE [Interacting]
     Indication: AGGRESSION
     Dosage: 200 mg, Unknown
     Route: 048
  3. TOPIRAMATE [Interacting]
     Indication: AGGRESSION
     Dosage: 50 mg/ 8 hours
     Route: 065
  4. RIVOTRIL [Interacting]
     Indication: AGGRESSION
     Dosage: 6.5 mg, /24 hours, divided in 4 doses
     Route: 048
  5. FLURAZEPAM [Interacting]
     Indication: AGGRESSION
     Dosage: 30 mg, / 24 hours
     Route: 065
  6. BIPERIDENE RETARD [Suspect]

REACTIONS (2)
  - Drug interaction [Unknown]
  - Rhabdomyolysis [Recovering/Resolving]
